FAERS Safety Report 15986477 (Version 1)
Quarter: 2019Q1

REPORT INFORMATION
  Report Type: Spontaneous
  Country: SA (occurrence: SA)
  Receive Date: 20190220
  Receipt Date: 20190220
  Transmission Date: 20190418
  Serious: Yes (Other)
  Sender: FDA-Public Use
  Company Number: None

PATIENT
  Age: 56 Year
  Sex: Male

DRUGS (1)
  1. DAPSONE. [Suspect]
     Active Substance: DAPSONE

REACTIONS (7)
  - Nausea [None]
  - Chest pain [None]
  - Oedema peripheral [None]
  - Asthenia [None]
  - Focal segmental glomerulosclerosis [None]
  - Weight increased [None]
  - Dizziness [None]
